FAERS Safety Report 14724315 (Version 1)
Quarter: 2018Q2

REPORT INFORMATION
  Report Type: Spontaneous
  Country: US (occurrence: US)
  Receive Date: 20180405
  Receipt Date: 20180405
  Transmission Date: 20180711
  Serious: No
  Sender: FDA-Public Use
  Company Number: US-ROCHE-2002103

PATIENT
  Sex: Male

DRUGS (18)
  1. DEXAMETHASON [Concomitant]
     Active Substance: DEXAMETHASONE
  2. SODIUM CHLORIDE. [Concomitant]
     Active Substance: SODIUM CHLORIDE
  3. COMPAZINE [Concomitant]
     Active Substance: PROCHLORPERAZINE MALEATE
  4. KEYTRUDA [Concomitant]
     Active Substance: PEMBROLIZUMAB
  5. FAMOTIDINE. [Concomitant]
     Active Substance: FAMOTIDINE
  6. LOSARTAN. [Concomitant]
     Active Substance: LOSARTAN
  7. POLYETHYLENE GLYCOL [Concomitant]
     Active Substance: POLYETHYLENE GLYCOLS
  8. DEXAMETHASONE. [Concomitant]
     Active Substance: DEXAMETHASONE
  9. ACETAMINOPHEN. [Concomitant]
     Active Substance: ACETAMINOPHEN
  10. FUROSEMIDE. [Concomitant]
     Active Substance: FUROSEMIDE
  11. ZOFRAN [Concomitant]
     Active Substance: ONDANSETRON HYDROCHLORIDE
  12. TAMSULOSIN [Concomitant]
     Active Substance: TAMSULOSIN
  13. MUCINEX [Concomitant]
     Active Substance: GUAIFENESIN
  14. NYSTATIN. [Concomitant]
     Active Substance: NYSTATIN
  15. ERIVEDGE [Suspect]
     Active Substance: VISMODEGIB
     Indication: SALIVARY GLAND CANCER
     Route: 048
     Dates: start: 20161019
  16. CISPLATIN. [Concomitant]
     Active Substance: CISPLATIN
  17. OXYCODONE [Concomitant]
     Active Substance: OXYCODONE
  18. PROCHLORPERAZINE. [Concomitant]
     Active Substance: PROCHLORPERAZINE

REACTIONS (3)
  - Asthenia [Unknown]
  - Off label use [Unknown]
  - Intentional product use issue [Unknown]
